FAERS Safety Report 13523223 (Version 2)
Quarter: 2017Q4

REPORT INFORMATION
  Report Type: Spontaneous
  Country: US (occurrence: US)
  Receive Date: 20170508
  Receipt Date: 20171207
  Transmission Date: 20180320
  Serious: No
  Sender: FDA-Public Use
  Company Number: US-VIFOR (INTERNATIONAL) INC.-VIT-2017-01010

PATIENT
  Sex: Male
  Weight: 68.1 kg

DRUGS (5)
  1. LOSARTAN. [Concomitant]
     Active Substance: LOSARTAN
  2. VELTASSA [Suspect]
     Active Substance: PATIROMER
     Route: 065
  3. AMLODIPINE [Concomitant]
     Active Substance: AMLODIPINE BESYLATE
  4. VELTASSA [Suspect]
     Active Substance: PATIROMER
     Indication: HYPERKALAEMIA
     Route: 048
     Dates: start: 2016
  5. SODIUM BICARBONATE. [Concomitant]
     Active Substance: SODIUM BICARBONATE

REACTIONS (4)
  - Diarrhoea [Recovered/Resolved]
  - Product solubility abnormal [Unknown]
  - Product taste abnormal [Recovered/Resolved]
  - Blood phosphorus increased [Recovered/Resolved]

NARRATIVE: CASE EVENT DATE: 2016
